FAERS Safety Report 8540577-8 (Version None)
Quarter: 2012Q3

REPORT INFORMATION
  Report Type: 
  Country: None (occurrence: None)
  Receive Date: 20120726
  Receipt Date: 20111007
  Transmission Date: 20120928
  Serious: No
  Sender: FDA-Public Use
  Company Number: US-ASTRAZENECA-2011SE46136

PATIENT
  Age: 40 Year
  Sex: Female
  Weight: 62.1 kg

DRUGS (10)
  1. SINGULAIR [Concomitant]
  2. FIORICETTE [Concomitant]
  3. SEROQUEL [Suspect]
     Indication: PSYCHOTIC DISORDER
     Route: 048
  4. SEROQUEL [Suspect]
     Route: 048
  5. SEROQUEL [Suspect]
     Dosage: I TABLET PER ORAL AT 5 PM  AND 2 TABLET PO EVERY NIGHT
     Route: 048
     Dates: start: 20090101
  6. SEROQUEL [Suspect]
     Indication: BIPOLAR DISORDER
     Route: 048
  7. SEROQUEL [Suspect]
     Dosage: I TABLET PER ORAL AT 5 PM  AND 2 TABLET PO EVERY NIGHT
     Route: 048
     Dates: start: 20090101
  8. LITHIUM CARBONATE [Concomitant]
  9. SEROQUEL [Suspect]
     Route: 048
  10. KLONOPIN [Concomitant]

REACTIONS (9)
  - LOGORRHOEA [None]
  - MATERNAL EXPOSURE DURING PREGNANCY [None]
  - HALLUCINATION, AUDITORY [None]
  - ABNORMAL BEHAVIOUR [None]
  - DELUSIONAL PERCEPTION [None]
  - DRUG DOSE OMISSION [None]
  - INSOMNIA [None]
  - MANIA [None]
  - ILLUSION [None]
